FAERS Safety Report 17389718 (Version 5)
Quarter: 2021Q2

REPORT INFORMATION
  Report Type: Report from Study
  Country: None (occurrence: FR)
  Receive Date: 20200207
  Receipt Date: 20210505
  Transmission Date: 20210716
  Serious: Yes (Death, Other)
  Sender: FDA-Public Use
  Company Number: FR-ABBVIE-20K-056-3263579-00

PATIENT
  Age: 80 Year
  Sex: Female
  Weight: 60 kg

DRUGS (33)
  1. VENCLYXTO [Suspect]
     Active Substance: VENETOCLAX
     Route: 048
     Dates: start: 20191217, end: 20191223
  2. VENCLYXTO [Suspect]
     Active Substance: VENETOCLAX
     Route: 048
     Dates: start: 20200916, end: 20210210
  3. COUMADINE [Concomitant]
     Active Substance: WARFARIN SODIUM
     Indication: ATRIAL FIBRILLATION
     Dates: start: 2013
  4. PARACETAMOL [Concomitant]
     Active Substance: ACETAMINOPHEN
     Indication: OSTEOARTHRITIS
     Dates: start: 2013
  5. LASILIX [Concomitant]
     Active Substance: FUROSEMIDE
     Indication: PULMONARY ARTERIAL HYPERTENSION
     Dates: start: 2019
  6. ZYMAD [Concomitant]
     Active Substance: CHOLECALCIFEROL
     Indication: VITAMIN SUPPLEMENTATION
     Dates: start: 2019
  7. BACTRIM [Concomitant]
     Active Substance: SULFAMETHOXAZOLE\TRIMETHOPRIM
     Indication: INFECTION PROPHYLAXIS
     Dates: start: 20200123
  8. VENCLYXTO [Suspect]
     Active Substance: VENETOCLAX
     Route: 048
     Dates: start: 20191231, end: 20200106
  9. REFRESH CELLUVISC [Concomitant]
     Active Substance: CARBOXYMETHYLCELLULOSE SODIUM
     Indication: PROPHYLAXIS
     Dates: start: 20200123
  10. BISOPROLOL [Concomitant]
     Active Substance: BISOPROLOL
     Indication: ARRHYTHMIA
  11. EFFEXOR [Concomitant]
     Active Substance: VENLAFAXINE HYDROCHLORIDE
     Indication: DEPRESSION
     Dates: start: 2019
  12. SPASFON [Concomitant]
     Indication: GASTROINTESTINAL DISORDER PROPHYLAXIS
     Dates: start: 20191217
  13. FASTURTEC [Concomitant]
     Active Substance: RASBURICASE
     Indication: HYPERURICAEMIA
     Dates: start: 20191223, end: 20191223
  14. LEDERFOLINE [Concomitant]
     Active Substance: LEUCOVORIN CALCIUM
     Indication: ANAEMIA PROPHYLAXIS
     Dates: start: 20200123
  15. METHYLPREDNISOLONE. [Concomitant]
     Active Substance: METHYLPREDNISOLONE
     Indication: ALLERGY PROPHYLAXIS
     Dates: start: 20200122, end: 20200122
  16. VENCLYXTO [Suspect]
     Active Substance: VENETOCLAX
     Route: 048
     Dates: start: 20200107, end: 20200915
  17. HEMIGOXINE [Concomitant]
     Active Substance: DIGOXIN
     Indication: ATRIAL FIBRILLATION
     Dates: start: 2013
  18. INEXIUM [Concomitant]
     Active Substance: ESOMEPRAZOLE
     Indication: PROPHYLAXIS
     Dates: start: 2013
  19. LORATADINE. [Concomitant]
     Active Substance: LORATADINE
     Indication: ALLERGY PROPHYLAXIS
     Dates: start: 20200122, end: 20200122
  20. LANSOYL [Concomitant]
     Active Substance: MINERAL OIL
     Indication: CONSTIPATION PROPHYLAXIS
     Dates: start: 20200219
  21. BISOPROLOL [Concomitant]
     Active Substance: BISOPROLOL
     Indication: ATRIAL FIBRILLATION
     Dates: start: 2013
  22. ZOPICLONE [Concomitant]
     Active Substance: ZOPICLONE
     Dates: start: 20191217, end: 20191217
  23. VALACYCLOVIR [Concomitant]
     Active Substance: VALACYCLOVIR HYDROCHLORIDE
     Indication: INFECTION PROPHYLAXIS
     Dates: start: 20200122
  24. MOVICOL [Concomitant]
     Active Substance: POLYETHYLENE GLYCOL 3350\POTASSIUM CHLORIDE\SODIUM BICARBONATE\SODIUM CHLORIDE
     Indication: CONSTIPATION PROPHYLAXIS
     Dates: start: 20200219
  25. SIMVASTATINE [Concomitant]
     Active Substance: SIMVASTATIN
     Indication: HYPERTENSION
     Dates: start: 2013
  26. COUMADINE [Concomitant]
     Active Substance: WARFARIN SODIUM
     Indication: ARRHYTHMIA
  27. ZOPICLONE [Concomitant]
     Active Substance: ZOPICLONE
     Indication: PROPHYLAXIS
     Dates: start: 20191210, end: 20191210
  28. ALLOPURINOL. [Concomitant]
     Active Substance: ALLOPURINOL
     Indication: PROPHYLAXIS
     Dates: start: 20191224
  29. VENCLYXTO [Suspect]
     Active Substance: VENETOCLAX
     Indication: CHRONIC LYMPHOCYTIC LEUKAEMIA
     Route: 048
     Dates: start: 20191210, end: 20191216
  30. VENCLYXTO [Suspect]
     Active Substance: VENETOCLAX
     Route: 048
     Dates: start: 20191224, end: 20191230
  31. HEMIGOXINE [Concomitant]
     Active Substance: DIGOXIN
     Indication: ARRHYTHMIA
  32. RITUXIMAB. [Suspect]
     Active Substance: RITUXIMAB
     Indication: CHRONIC LYMPHOCYTIC LEUKAEMIA
     Route: 065
     Dates: start: 20200122
  33. ZOPICLONE [Concomitant]
     Active Substance: ZOPICLONE
     Dates: start: 20191230, end: 20191230

REACTIONS (17)
  - Hyperuricaemia [Recovered/Resolved]
  - Hyperuricaemia [Recovered/Resolved]
  - Salivary gland pain [Recovered/Resolved]
  - Alveolar lung disease [Recovering/Resolving]
  - Pain in jaw [Not Recovered/Not Resolved]
  - Hyperuricaemia [Recovered/Resolved]
  - Drug hypersensitivity [Recovered/Resolved]
  - Diarrhoea [Not Recovered/Not Resolved]
  - Neutropenia [Recovered/Resolved]
  - Haematoma [Not Recovered/Not Resolved]
  - Cytopenia [Not Recovered/Not Resolved]
  - Lung disorder [Recovering/Resolving]
  - Oedema peripheral [Recovered/Resolved]
  - COVID-19 pneumonia [Fatal]
  - Peripheral venous disease [Not Recovered/Not Resolved]
  - Neutropenia [Recovered/Resolved]
  - Asthenia [Not Recovered/Not Resolved]

NARRATIVE: CASE EVENT DATE: 201912
